FAERS Safety Report 4293289-3 (Version None)
Quarter: 2004Q1

REPORT INFORMATION
  Report Type: 
  Country: None (occurrence: None)
  Receive Date: 20040210
  Receipt Date: 20031231
  Transmission Date: 20041129
  Serious: Yes (Hospitalization, Disabling, Other)
  Sender: FDA-Public Use
  Company Number: USA-2002-0002804

PATIENT
  Age: 42 Year
  Sex: Female

DRUGS (20)
  1. OXYCONTIN [Suspect]
     Indication: PAIN
     Dosage: SEE IMAGE
     Dates: start: 19970122
  2. XANAX [Suspect]
  3. PROVIGIL [Suspect]
  4. PAXIL [Concomitant]
  5. PERCOCET [Concomitant]
  6. HYDROCHLOROTHIAZIDE [Concomitant]
  7. CARDIZEM [Concomitant]
  8. DYAZIDE [Concomitant]
  9. VIOXX [Concomitant]
  10. VIAGRA [Concomitant]
  11. DURAGESIC [Concomitant]
  12. EFFEXOR [Concomitant]
  13. SENOKOT [Concomitant]
  14. DULCOLAX [Concomitant]
  15. ZOLOFT [Concomitant]
  16. PRILOSEC [Concomitant]
  17. TYLENOL (CAPLET) [Concomitant]
  18. DIAZEPAM [Concomitant]
  19. PAMELOR [Concomitant]
  20. FIORICET [Concomitant]

REACTIONS (51)
  - ABDOMINAL PAIN [None]
  - AMNESIA [None]
  - ANXIETY [None]
  - BREAST PAIN [None]
  - BRONCHITIS [None]
  - CARDIAC STRESS TEST ABNORMAL [None]
  - CHEST PAIN [None]
  - CONSTIPATION [None]
  - COSTOCHONDRITIS [None]
  - CYANOSIS [None]
  - DEPRESSION [None]
  - DIZZINESS [None]
  - DRUG DEPENDENCE [None]
  - DRUG INEFFECTIVE [None]
  - DRUG TOXICITY [None]
  - DRUG WITHDRAWAL SYNDROME [None]
  - DYSPNOEA [None]
  - EAR PAIN [None]
  - EMOTIONAL DISTRESS [None]
  - EXOSTOSIS [None]
  - EYE IRRITATION [None]
  - FATIGUE [None]
  - FIBROMYALGIA [None]
  - GASTROENTERITIS VIRAL [None]
  - HEART SOUNDS ABNORMAL [None]
  - HOT FLUSH [None]
  - HYPERHIDROSIS [None]
  - HYPOAESTHESIA [None]
  - INSOMNIA [None]
  - INTERVERTEBRAL DISC PROTRUSION [None]
  - KYPHOSIS CONGENITAL [None]
  - MEMORY IMPAIRMENT [None]
  - MOUTH ULCERATION [None]
  - MUSCLE SPASMS [None]
  - NAUSEA [None]
  - NECK DEFORMITY [None]
  - OEDEMA PERIPHERAL [None]
  - PAIN [None]
  - PNEUMONITIS [None]
  - PRESCRIBED OVERDOSE [None]
  - RESPIRATORY DISTRESS [None]
  - SOCIAL AVOIDANT BEHAVIOUR [None]
  - SOMNOLENCE [None]
  - SPINAL CORD COMPRESSION [None]
  - SPONDYLOLISTHESIS ACQUIRED [None]
  - SPONDYLOSIS [None]
  - TOOTH ABSCESS [None]
  - TOOTH DISORDER [None]
  - TOOTH LOSS [None]
  - WEIGHT DECREASED [None]
  - WEIGHT INCREASED [None]
